FAERS Safety Report 10031023 (Version 3)
Quarter: 2014Q2

REPORT INFORMATION
  Report Type: Spontaneous
  Country: JP (occurrence: JP)
  Receive Date: 20140324
  Receipt Date: 20140413
  Transmission Date: 20141212
  Serious: Yes (Other)
  Sender: FDA-Public Use
  Company Number: JP-009507513-1403JPN009973

PATIENT
  Age: 22 Year
  Sex: Male

DRUGS (2)
  1. THERAPY UNSPECIFIED [Suspect]
  2. CHORIONIC GONADOTROPIN [Suspect]

REACTIONS (1)
  - Brain teratoma [Unknown]
